FAERS Safety Report 4653131-5 (Version None)
Quarter: 2005Q2

REPORT INFORMATION
  Report Type: 
  Country: None (occurrence: None)
  Receive Date: 20050503
  Receipt Date: 20050419
  Transmission Date: 20051028
  Serious: Yes (Hospitalization, Other)
  Sender: FDA-Public Use
  Company Number: SUS1-2005-00189

PATIENT
  Age: 10 Year
  Sex: Male
  Weight: 25 kg

DRUGS (2)
  1. ADDERALL XR 10 [Suspect]
     Indication: ATTENTION DEFICIT/HYPERACTIVITY DISORDER
     Dosage: 10 MG, Q AM, ORAL
     Route: 048
     Dates: start: 20050228, end: 20050304
  2. AMPHETMAINE SALTS [Concomitant]

REACTIONS (18)
  - ANAEMIA [None]
  - CONJUNCTIVITIS [None]
  - DEPRESSION [None]
  - GALLBLADDER DISORDER [None]
  - HYDRONEPHROSIS [None]
  - LEUKOPENIA [None]
  - MENTAL STATUS CHANGES [None]
  - PLATELET COUNT DECREASED [None]
  - PLEURAL EFFUSION [None]
  - PNEUMONIA MYCOPLASMAL [None]
  - POST-TRAUMATIC STRESS DISORDER [None]
  - RENAL FAILURE ACUTE [None]
  - ROCKY MOUNTAIN SPOTTED FEVER [None]
  - SEPSIS [None]
  - STEVENS-JOHNSON SYNDROME [None]
  - STRIDOR [None]
  - TACHYCARDIA [None]
  - TOXIC EPIDERMAL NECROLYSIS [None]
